FAERS Safety Report 10044355 (Version 1)
Quarter: 2014Q1

REPORT INFORMATION
  Report Type: Spontaneous
  Country: US (occurrence: None)
  Receive Date: 20140306
  Receipt Date: 20140306
  Transmission Date: 20141002
  Serious: Yes (Other)
  Sender: FDA-Public Use
  Company Number: 163-21880-13070228

PATIENT
  Age: 64 Year
  Sex: Female

DRUGS (2)
  1. REVLIMID [Suspect]
     Indication: PLASMA CELL MYELOMA
     Dosage: 25MG, 1 IN 1D, PO
     Route: 048
     Dates: start: 201211
  2. DEXAMETHASONE (DEXAMETHASONE) [Concomitant]

REACTIONS (2)
  - Chronic obstructive pulmonary disease [None]
  - Drug dose omission [None]
